FAERS Safety Report 9630865 (Version 1)
Quarter: 2013Q4

REPORT INFORMATION
  Report Type: Spontaneous
  Country: None (occurrence: None)
  Receive Date: 20131011
  Receipt Date: 20131011
  Transmission Date: 20140711
  Serious: Yes (Other)
  Sender: FDA-Public Use
  Company Number: 2013P1019931

PATIENT
  Sex: 0

DRUGS (1)
  1. MITOMYCIN [Suspect]
     Indication: TRANSITIONAL CELL CARCINOMA
     Dosage: 40 MINUTES

REACTIONS (2)
  - Ureteric stenosis [None]
  - Renal impairment [None]
